FAERS Safety Report 17842446 (Version 1)
Quarter: 2020Q2

REPORT INFORMATION
  Report Type: Spontaneous
  Country: GB (occurrence: GB)
  Receive Date: 20200529
  Receipt Date: 20200529
  Transmission Date: 20200714
  Serious: Yes (Disabling)
  Sender: FDA-Public Use
  Company Number: GB-NOVOPROD-730158

PATIENT
  Age: 58 Year
  Sex: Female
  Weight: 77 kg

DRUGS (7)
  1. METFORMIN [Concomitant]
     Active Substance: METFORMIN HYDROCHLORIDE
     Dosage: 1 DF QD, WITH BREAKFAST.
     Dates: start: 20190514, end: 20200303
  2. RAMIPRIL. [Concomitant]
     Active Substance: RAMIPRIL
     Dosage: 1 DF QD
     Dates: start: 20190514
  3. OZEMPIC [Suspect]
     Active Substance: SEMAGLUTIDE
     Indication: PRODUCT USED FOR UNKNOWN INDICATION
     Dosage: 0.5 MG
     Route: 065
     Dates: start: 20200512
  4. HUMULIN L [Concomitant]
     Active Substance: INSULIN HUMAN
     Dosage: 10 UNITS 30 MINUTES.
     Route: 058
     Dates: start: 20190514
  5. OZEMPIC [Suspect]
     Active Substance: SEMAGLUTIDE
     Indication: PRODUCT USED FOR UNKNOWN INDICATION
     Dosage: 0.25 MG, QW(AS INSTRUCTED)
     Route: 065
     Dates: start: 20200402, end: 20200511
  6. TRULICITY [Concomitant]
     Active Substance: DULAGLUTIDE
     Dosage: USE WEEKLY AS ADVISED.
     Dates: start: 20190806, end: 20200303
  7. AMLODIPINE [Concomitant]
     Active Substance: AMLODIPINE BESYLATE
     Dosage: 1 DF QD
     Dates: start: 20191204

REACTIONS (2)
  - Swelling [Not Recovered/Not Resolved]
  - Pain [Not Recovered/Not Resolved]

NARRATIVE: CASE EVENT DATE: 20200512
